FAERS Safety Report 8393115-7 (Version None)
Quarter: 2012Q2

REPORT INFORMATION
  Report Type: 
  Country: None (occurrence: None)
  Receive Date: 20120529
  Receipt Date: 20120427
  Transmission Date: 20120825
  Serious: No
  Sender: FDA-Public Use
  Company Number: US-ABBOTT-12P-163-0931711-00

PATIENT
  Age: 65 Year
  Sex: Male
  Weight: 105.78 kg

DRUGS (15)
  1. FLONASE [Concomitant]
     Indication: HYPERSENSITIVITY
  2. XOPONEX [Concomitant]
     Indication: ASTHMA
     Route: 055
  3. MULTI-VITAMINS [Concomitant]
     Indication: PRODUCT USED FOR UNKNOWN INDICATION
     Route: 048
  4. JANUVIA [Concomitant]
     Indication: DIABETES MELLITUS
  5. OXYCODONE HCL [Concomitant]
     Indication: ARTHRALGIA
     Route: 048
  6. LEVOXYL [Concomitant]
     Indication: THYROID DISORDER
  7. CALAN [Concomitant]
     Indication: PRODUCT USED FOR UNKNOWN INDICATION
  8. AMLODIPINE/ HYDROCHLOROTHIAZIDE [Concomitant]
     Indication: PRODUCT USED FOR UNKNOWN INDICATION
  9. LOSARTAN POTASSIUM [Concomitant]
     Indication: PRODUCT USED FOR UNKNOWN INDICATION
  10. GLIPIZIDE [Concomitant]
     Indication: DIABETES MELLITUS
  11. LABETALOL HCL [Concomitant]
     Indication: HYPERTENSION
  12. ASMANEX TWISTHALER [Concomitant]
     Indication: ASTHMA
  13. VITAMIN-MINERAL COMPOUND TAB [Concomitant]
     Indication: VISUAL IMPAIRMENT
  14. ANDROGEL [Suspect]
     Indication: BLOOD TESTOSTERONE DECREASED
     Dosage: 2 PUMPS DAILY
     Route: 061
     Dates: start: 20120101
  15. OXYCONTIN [Concomitant]
     Indication: ARTHRALGIA
     Route: 048

REACTIONS (4)
  - MUSCULAR WEAKNESS [None]
  - DRUG INEFFECTIVE [None]
  - LIBIDO DECREASED [None]
  - HYPERHIDROSIS [None]
